FAERS Safety Report 8915728 (Version 1)
Quarter: 2012Q4

REPORT INFORMATION
  Report Type: 
  Country: GB (occurrence: GB)
  Receive Date: 20121119
  Receipt Date: 20121119
  Transmission Date: 20130627
  Serious: Yes (Other)
  Sender: FDA-Public Use
  Company Number: GB-TEVA-369547ISR

PATIENT
  Age: 26 Year
  Sex: Female

DRUGS (5)
  1. METFORMIN [Suspect]
     Indication: DIABETES MELLITUS
     Dates: start: 20121018, end: 20121018
  2. PULMICORT [Concomitant]
  3. SALBUTAMOL [Concomitant]
     Indication: ASTHMA
  4. VENTOLIN [Concomitant]
     Indication: ASTHMA
     Route: 055
  5. PREDNISOLONE [Concomitant]
     Indication: ASTHMA
     Route: 048

REACTIONS (2)
  - Pruritus generalised [Recovered/Resolved]
  - Hallucination [Recovered/Resolved]
